FAERS Safety Report 12268971 (Version 2)
Quarter: 2016Q2

REPORT INFORMATION
  Report Type: Spontaneous
  Country: HR (occurrence: HR)
  Receive Date: 20160414
  Receipt Date: 20160519
  Transmission Date: 20160815
  Serious: Yes (Life-Threatening, Hospitalization, Other)
  Sender: FDA-Public Use
  Company Number: HR-PFIZER INC-2016207652

PATIENT
  Age: 41 Year
  Sex: Female

DRUGS (29)
  1. SULFASALAZINE. [Suspect]
     Active Substance: SULFASALAZINE
     Dosage: UNK
     Route: 048
     Dates: start: 201001, end: 201004
  2. ARAVA [Suspect]
     Active Substance: LEFLUNOMIDE
     Indication: RHEUMATOID ARTHRITIS
     Dosage: UNK
     Route: 048
     Dates: start: 200802
  3. PREDNISONE. [Concomitant]
     Active Substance: PREDNISONE
     Indication: RHEUMATOID ARTHRITIS
     Dosage: 10 MG, UNK
     Route: 048
     Dates: start: 201001, end: 201004
  4. DECORTIN [Concomitant]
     Active Substance: PREDNISONE
     Dosage: UNK
     Dates: start: 201304
  5. SULFASALAZINE. [Suspect]
     Active Substance: SULFASALAZINE
     Indication: RHEUMATOID ARTHRITIS
     Dosage: 2 DF, 2X/DAY
     Route: 048
     Dates: start: 200907, end: 201103
  6. SULFASALAZINE. [Suspect]
     Active Substance: SULFASALAZINE
     Dosage: UNK
     Route: 048
     Dates: start: 201304
  7. HUMIRA [Suspect]
     Active Substance: ADALIMUMAB
     Indication: RHEUMATOID ARTHRITIS
     Dosage: 40 MG, UNK
     Route: 058
     Dates: start: 201001, end: 201004
  8. HUMIRA [Suspect]
     Active Substance: ADALIMUMAB
     Dosage: 40 MG, UNK
     Route: 058
     Dates: start: 201108
  9. ARAVA [Suspect]
     Active Substance: LEFLUNOMIDE
     Dosage: 20 MG, UNK
     Route: 048
     Dates: start: 201001, end: 201103
  10. HUMIRA [Suspect]
     Active Substance: ADALIMUMAB
     Dosage: 40 MG, UNK
     Route: 058
     Dates: start: 201601
  11. ARAVA [Suspect]
     Active Substance: LEFLUNOMIDE
     Dosage: 20 MG, UNK
     Route: 048
     Dates: start: 200907
  12. DECORTIN [Concomitant]
     Active Substance: PREDNISONE
     Dosage: UNK
     Dates: start: 201410
  13. VITAMIN D /00107901/ [Concomitant]
     Active Substance: ERGOCALCIFEROL
     Dosage: UNK
     Dates: start: 200712
  14. CALCIUM [Concomitant]
     Active Substance: CALCIUM
     Dosage: UNK
     Dates: start: 200712
  15. HUMIRA [Suspect]
     Active Substance: ADALIMUMAB
     Dosage: 40 MG, UNK
     Route: 058
     Dates: start: 201212, end: 201304
  16. DECORTIN [Concomitant]
     Active Substance: PREDNISONE
     Dosage: REDUCTION TO 5 MG
     Dates: start: 200712
  17. DECORTIN [Concomitant]
     Active Substance: PREDNISONE
     Dosage: 7.5-10 MGUNK
     Dates: start: 201603
  18. ENBREL [Suspect]
     Active Substance: ETANERCEPT
     Indication: RHEUMATOID ARTHRITIS
     Dosage: UNK
     Dates: start: 201407, end: 201410
  19. DECORTIN [Concomitant]
     Active Substance: PREDNISONE
     Dosage: 10-5 MG
     Dates: start: 201403
  20. INFLECTRA [Suspect]
     Active Substance: INFLIXIMAB-DYYB
     Dosage: UNK
     Dates: start: 201501, end: 201503
  21. ARAVA [Suspect]
     Active Substance: LEFLUNOMIDE
     Dosage: UNK
     Route: 048
     Dates: start: 201108
  22. DECORTIN [Concomitant]
     Active Substance: PREDNISONE
     Dosage: 10-5 MG
     Dates: start: 201407
  23. DECORTIN [Concomitant]
     Active Substance: PREDNISONE
     Dosage: UNK
     Dates: start: 201511
  24. SULFASALAZINE. [Suspect]
     Active Substance: SULFASALAZINE
     Dosage: UNK
     Route: 048
     Dates: start: 201103, end: 201103
  25. ARAVA [Suspect]
     Active Substance: LEFLUNOMIDE
     Dosage: UNK
     Route: 048
     Dates: start: 201212, end: 201304
  26. DECORTIN [Concomitant]
     Active Substance: PREDNISONE
     Dosage: 10-5 MGUNK
     Dates: start: 201001, end: 201103
  27. DECORTIN [Concomitant]
     Active Substance: PREDNISONE
     Indication: RHEUMATOID ARTHRITIS
     Dosage: UNK
     Dates: start: 200707
  28. DECORTIN [Concomitant]
     Active Substance: PREDNISONE
     Dosage: UNK
     Dates: start: 200802
  29. DECORTIN [Concomitant]
     Active Substance: PREDNISONE
     Dosage: 15-10 MG
     Dates: start: 201309

REACTIONS (16)
  - Suicide attempt [Recovered/Resolved]
  - Mobility decreased [Unknown]
  - Pyrexia [Recovered/Resolved]
  - Abdominal pain [Unknown]
  - Suicide attempt [Recovering/Resolving]
  - Hepatic lesion [Recovered/Resolved]
  - Bone erosion [Unknown]
  - Condition aggravated [Not Recovered/Not Resolved]
  - Suicide attempt [Recovered/Resolved]
  - Performance status decreased [Unknown]
  - Infusion related reaction [Recovered/Resolved]
  - Bone erosion [Unknown]
  - Eye oedema [Unknown]
  - Suicide attempt [Recovered/Resolved]
  - Hepatic enzyme increased [Recovered/Resolved]
  - Polyarthritis [Unknown]

NARRATIVE: CASE EVENT DATE: 201103
